FAERS Safety Report 8041094-4 (Version None)
Quarter: 2012Q1

REPORT INFORMATION
  Report Type: 
  Country: None (occurrence: None)
  Receive Date: 20120109
  Receipt Date: 20111227
  Transmission Date: 20120608
  Serious: Yes (Other)
  Sender: FDA-Public Use
  Company Number: 2011P1015659

PATIENT
  Age: 64 Year
  Sex: Female
  Weight: 38.5 kg

DRUGS (2)
  1. OXYCONTIN [Suspect]
     Indication: DIFFUSE LARGE B-CELL LYMPHOMA
     Dosage: 2.07 MG/KG;QD;PO
     Route: 048
  2. VORICONAZOLE [Suspect]
     Indication: DIFFUSE LARGE B-CELL LYMPHOMA
     Dosage: 2.59 MG/KG;QD;IV
     Route: 042

REACTIONS (3)
  - DELIRIUM [None]
  - DRUG INTERACTION [None]
  - HYPOPNOEA [None]
